FAERS Safety Report 5365633-7 (Version None)
Quarter: 2007Q2

REPORT INFORMATION
  Report Type: 
  Country: None (occurrence: None)
  Receive Date: 20070611
  Receipt Date: 20061130
  Transmission Date: 20071010
  Serious: Yes (Death, Other)
  Sender: FDA-Public Use
  Company Number: USA-2006-0025853

PATIENT
  Age: 20 Year
  Sex: Male

DRUGS (3)
  1. OXYCONTIN [Suspect]
     Indication: DRUG ABUSER
     Dosage: 80 MG
  2. OXYCODONE HCL [Suspect]
     Indication: DRUG ABUSER
  3. ALPRAZOLAM [Suspect]
     Indication: DRUG ABUSER

REACTIONS (3)
  - LEGAL PROBLEM [None]
  - OVERDOSE [None]
  - SUBSTANCE ABUSE [None]
